FAERS Safety Report 26112400 (Version 2)
Quarter: 2025Q4

REPORT INFORMATION
  Report Type: Spontaneous
  Country: US (occurrence: US)
  Receive Date: 20251202
  Receipt Date: 20251230
  Transmission Date: 20260118
  Serious: No
  Sender: CSL BEHRING
  Company Number: US-CSL-16132

PATIENT
  Age: 33 Year
  Sex: Male

DRUGS (1)
  1. HIZENTRA [Suspect]
     Active Substance: HUMAN IMMUNOGLOBULIN G
     Dosage: UNK
     Route: 065

REACTIONS (11)
  - Depression [Unknown]
  - Pyrexia [Unknown]
  - Fatigue [Unknown]
  - Hypersomnia [Unknown]
  - Feeling abnormal [Unknown]
  - Illness [Unknown]
  - Sensitivity to weather change [Unknown]
  - Product dose omission issue [Unknown]
  - Fatigue [Unknown]
  - Hypersomnia [Unknown]
  - Pallor [Unknown]

NARRATIVE: CASE EVENT DATE: 20251124
